FAERS Safety Report 8959837 (Version 2)
Quarter: 2013Q1

REPORT INFORMATION
  Report Type: Spontaneous
  Country: US (occurrence: US)
  Receive Date: 20121211
  Receipt Date: 20130115
  Transmission Date: 20140127
  Serious: No
  Sender: FDA-Public Use
  Company Number: US-009507513-1211USA008285

PATIENT
  Age: 16 None
  Sex: Female
  Weight: 58.5 kg

DRUGS (2)
  1. IMPLANON [Suspect]
     Indication: CONTRACEPTION
     Dosage: 1 DF, UNK
     Dates: start: 20121114
  2. IMPLANON [Suspect]
     Dosage: 1 DF, UNK
     Dates: start: 20121116, end: 20121116

REACTIONS (6)
  - Infection [Not Recovered/Not Resolved]
  - Mood altered [Unknown]
  - Medical device complication [Unknown]
  - Complication of device insertion [Unknown]
  - Complication of device insertion [Unknown]
  - Device difficult to use [Unknown]
